FAERS Safety Report 11414902 (Version 7)
Quarter: 2015Q4

REPORT INFORMATION
  Report Type: Spontaneous
  Country: US (occurrence: US)
  Receive Date: 20150825
  Receipt Date: 20151028
  Transmission Date: 20160304
  Serious: Yes (Other)
  Sender: FDA-Public Use
  Company Number: US-BEH-2015053248

PATIENT
  Age: 72 Year
  Sex: Male
  Weight: 70 kg

DRUGS (17)
  1. HIZENTRA [Suspect]
     Active Substance: HUMAN IMMUNOGLOBULIN G
  2. HIZENTRA [Suspect]
     Active Substance: HUMAN IMMUNOGLOBULIN G
     Dosage: BACK TO 10 GM WEEKLY
     Route: 058
     Dates: start: 20150213
  3. DIPHENHYDRAMINE. [Concomitant]
     Active Substance: DIPHENHYDRAMINE
  4. CLONAZEPAM. [Concomitant]
     Active Substance: CLONAZEPAM
  5. LEVOTHYROXINE. [Concomitant]
     Active Substance: LEVOTHYROXINE
  6. HIZENTRA [Suspect]
     Active Substance: HUMAN IMMUNOGLOBULIN G
  7. HIZENTRA [Suspect]
     Active Substance: HUMAN IMMUNOGLOBULIN G
  8. EPIPEN [Concomitant]
     Active Substance: EPINEPHRINE
     Indication: ANAPHYLACTIC REACTION
  9. LOTEMAX [Concomitant]
     Active Substance: LOTEPREDNOL ETABONATE
  10. NASONEX [Concomitant]
     Active Substance: MOMETASONE FUROATE
  11. HIZENTRA [Suspect]
     Active Substance: HUMAN IMMUNOGLOBULIN G
     Indication: IMMUNODEFICIENCY
     Dosage: ??-???-2011; CHANGED TO 20 GM EVERY 2 WEEKS IN NOV-2014
     Route: 058
     Dates: end: 20150730
  12. HIZENTRA [Suspect]
     Active Substance: HUMAN IMMUNOGLOBULIN G
     Indication: IMMUNODEFICIENCY COMMON VARIABLE
     Dosage: CHANGED TO EVERY 2 WEEKS IN NOV-2014
     Route: 058
     Dates: start: 20141112
  13. HIZENTRA [Suspect]
     Active Substance: HUMAN IMMUNOGLOBULIN G
  14. ACETAMINOPHEN. [Concomitant]
     Active Substance: ACETAMINOPHEN
  15. LIDOCAINE. [Concomitant]
     Active Substance: LIDOCAINE
  16. ASPIRIN. [Concomitant]
     Active Substance: ASPIRIN
  17. HIZENTRA [Suspect]
     Active Substance: HUMAN IMMUNOGLOBULIN G
     Dosage: STARTED IN MAR-2014; 10 GM WEEKLY
     Route: 058

REACTIONS (14)
  - Dizziness [Not Recovered/Not Resolved]
  - Loss of consciousness [Recovered/Resolved]
  - Hyperprolinaemia [Not Recovered/Not Resolved]
  - Memory impairment [Not Recovered/Not Resolved]
  - Cognitive disorder [Not Recovered/Not Resolved]
  - Headache [Not Recovered/Not Resolved]
  - Anti-VGKC antibody [Not Recovered/Not Resolved]
  - Temporal lobe epilepsy [Not Recovered/Not Resolved]
  - Seizure like phenomena [Not Recovered/Not Resolved]
  - Parosmia [Not Recovered/Not Resolved]
  - Partial seizures [Not Recovered/Not Resolved]
  - Needle issue [Unknown]
  - Local reaction [Unknown]
  - Staring [Not Recovered/Not Resolved]

NARRATIVE: CASE EVENT DATE: 2015
